FAERS Safety Report 11937115 (Version 1)
Quarter: 2016Q1

REPORT INFORMATION
  Report Type: Spontaneous
  Country: TW (occurrence: TW)
  Receive Date: 20160121
  Receipt Date: 20160121
  Transmission Date: 20160526
  Serious: Yes (Other)
  Sender: FDA-Public Use
  Company Number: ALCN2016TW000661

PATIENT
  Age: 5 Year
  Sex: Female

DRUGS (2)
  1. PHENYLEPHRIN [Concomitant]
     Active Substance: PHENYLEPHRINE HYDROCHLORIDE
     Indication: PUPIL DILATION PROCEDURE
     Dosage: UNK GTT, ONCE/SINGLE
     Route: 047
  2. TROPICAMIDE. [Suspect]
     Active Substance: TROPICAMIDE
     Indication: PUPIL DILATION PROCEDURE
     Dosage: UNK GTT, ONCE/SINGLE
     Route: 065

REACTIONS (2)
  - Angle closure glaucoma [Recovered/Resolved with Sequelae]
  - Drug administered to patient of inappropriate age [Recovered/Resolved with Sequelae]
